FAERS Safety Report 15555730 (Version 1)
Quarter: 2018Q4

REPORT INFORMATION
  Report Type: Spontaneous
  Country: US (occurrence: US)
  Receive Date: 20181026
  Receipt Date: 20181026
  Transmission Date: 20190205
  Serious: Yes (Other)
  Sender: FDA-Public Use
  Company Number: None

PATIENT
  Age: 39 Year
  Sex: Male

DRUGS (1)
  1. GILENYA [Suspect]
     Active Substance: FINGOLIMOD HYDROCHLORIDE
     Indication: RELAPSING-REMITTING MULTIPLE SCLEROSIS
     Route: 048
     Dates: start: 20150301, end: 20181026

REACTIONS (4)
  - Nodal marginal zone B-cell lymphoma [None]
  - Cutaneous lymphoma [None]
  - Light chain analysis [None]
  - Blood disorder [None]

NARRATIVE: CASE EVENT DATE: 20181015
